FAERS Safety Report 25395693 (Version 3)
Quarter: 2025Q4

REPORT INFORMATION
  Report Type: Report from Study
  Country: US (occurrence: US)
  Receive Date: 20250604
  Receipt Date: 20251008
  Transmission Date: 20260118
  Serious: Yes (Other)
  Sender: PFIZER
  Company Number: US-PFIZER INC-202500047434

PATIENT
  Age: 75 Year
  Sex: Female

DRUGS (1)
  1. VYNDAMAX [Suspect]
     Active Substance: TAFAMIDIS
     Dosage: 61 MG, 1X/DAY
     Route: 048
     Dates: start: 20240122

REACTIONS (8)
  - Pancreatic failure [Not Recovered/Not Resolved]
  - Impaired gastric emptying [Not Recovered/Not Resolved]
  - Diarrhoea [Recovering/Resolving]
  - Gastrointestinal disorder [Recovering/Resolving]
  - Weight decreased [Not Recovered/Not Resolved]
  - Oesophagitis [Not Recovered/Not Resolved]
  - Fatigue [Unknown]
  - Oedema peripheral [Unknown]

NARRATIVE: CASE EVENT DATE: 20240101
